FAERS Safety Report 10557232 (Version 2)
Quarter: 2015Q1

REPORT INFORMATION
  Report Type: Report from Study
  Country: BR (occurrence: BR)
  Receive Date: 20141031
  Receipt Date: 20150326
  Transmission Date: 20150720
  Serious: Yes (Hospitalization, Other)
  Sender: FDA-Public Use
  Company Number: BR-ABBVIE-14P-020-1302489-00

PATIENT
  Age: 36 Year
  Sex: Male
  Weight: 54 kg

DRUGS (3)
  1. DEPAKOTE ER [Suspect]
     Active Substance: DIVALPROEX SODIUM
     Indication: AGGRESSION
     Dosage: DURING HOSPITALIZATION; DAILY DOSE: 1500 MG
     Route: 048
     Dates: start: 201409
  2. DEPAKOTE ER [Suspect]
     Active Substance: DIVALPROEX SODIUM
     Indication: MENTAL DISORDER
     Route: 065
  3. DEPAKOTE ER [Suspect]
     Active Substance: DIVALPROEX SODIUM
     Indication: ANXIOLYTIC THERAPY
     Route: 048
     Dates: start: 200812

REACTIONS (4)
  - Agitation [Recovered/Resolved]
  - Nervous system disorder [Recovered/Resolved]
  - Off label use [Unknown]
  - Aggression [Recovered/Resolved]

NARRATIVE: CASE EVENT DATE: 200812
